FAERS Safety Report 24176431 (Version 2)
Quarter: 2025Q2

REPORT INFORMATION
  Report Type: Spontaneous
  Country: US (occurrence: US)
  Receive Date: 20240806
  Receipt Date: 20250415
  Transmission Date: 20250717
  Serious: Yes (Hospitalization, Other)
  Sender: AUROBINDO
  Company Number: US-MLMSERVICE-20240717-PI136017-00149-1

PATIENT
  Age: 75 Year
  Sex: Male

DRUGS (4)
  1. FLECAINIDE [Suspect]
     Active Substance: FLECAINIDE
     Indication: Atrial fibrillation
     Dosage: 100 MILLIGRAM, TWO TIMES A DAY
     Route: 065
  2. FLECAINIDE [Suspect]
     Active Substance: FLECAINIDE
     Dosage: 200 MILLIGRAM, TWO TIMES A DAY (INCREASED)
     Route: 065
  3. APIXABAN [Concomitant]
     Active Substance: APIXABAN
     Indication: Anticoagulant therapy
     Route: 065
  4. METOPROLOL TARTRATE [Concomitant]
     Active Substance: METOPROLOL TARTRATE
     Indication: Anticoagulant therapy
     Route: 065

REACTIONS (6)
  - Acute kidney injury [Unknown]
  - Electrocardiogram QRS complex prolonged [Recovering/Resolving]
  - Arrhythmia induced cardiomyopathy [Recovered/Resolved]
  - Hypokinesia [Recovering/Resolving]
  - Toxicity to various agents [Recovered/Resolved]
  - Ejection fraction decreased [Recovering/Resolving]
